FAERS Safety Report 5403246-9 (Version None)
Quarter: 2007Q3

REPORT INFORMATION
  Report Type: 
  Country: None (occurrence: None)
  Receive Date: 20070801
  Receipt Date: 20070720
  Transmission Date: 20080115
  Serious: Yes (Other)
  Sender: FDA-Public Use
  Company Number: AU-PFIZER INC-2007061040

PATIENT
  Age: 14 Year
  Sex: Female

DRUGS (3)
  1. LYRICA [Suspect]
     Indication: NEURALGIA
     Route: 048
     Dates: start: 20070416, end: 20070515
  2. GABAPENTIN [Suspect]
  3. NORTRIPTYLINE HCL [Concomitant]

REACTIONS (1)
  - BLISTER [None]
